FAERS Safety Report 7109313-6 (Version None)
Quarter: 2010Q4

REPORT INFORMATION
  Report Type: 
  Country: None (occurrence: None)
  Receive Date: 20101118
  Receipt Date: 20101115
  Transmission Date: 20110411
  Serious: Yes (Other)
  Sender: FDA-Public Use
  Company Number: US-ASTRAZENECA-2010SE54475

PATIENT
  Sex: Male

DRUGS (1)
  1. SEROQUEL [Suspect]
     Route: 048
     Dates: start: 20011214, end: 20091222

REACTIONS (34)
  - ANGIOPATHY [None]
  - ARRHYTHMIA [None]
  - ASTHENIA [None]
  - BRUXISM [None]
  - CEREBRAL ATROPHY [None]
  - COUGH [None]
  - DEEP VEIN THROMBOSIS [None]
  - ELECTROCARDIOGRAM QRS COMPLEX PROLONGED [None]
  - ELECTROCARDIOGRAM QT PROLONGED [None]
  - ELECTROCARDIOGRAM ST SEGMENT ELEVATION [None]
  - ELECTROCARDIOGRAM T WAVE INVERSION [None]
  - FATIGUE [None]
  - GASTROOESOPHAGEAL REFLUX DISEASE [None]
  - GYNAECOMASTIA [None]
  - HEADACHE [None]
  - HEART RATE IRREGULAR [None]
  - HYPERGLYCAEMIA [None]
  - HYPERHIDROSIS [None]
  - HYPERLIPIDAEMIA [None]
  - HYPERTENSION [None]
  - HYPOTHYROIDISM [None]
  - INCREASED APPETITE [None]
  - INSOMNIA [None]
  - LETHARGY [None]
  - METABOLIC DISORDER [None]
  - MYOCARDIAL INFARCTION [None]
  - OEDEMA PERIPHERAL [None]
  - PAIN [None]
  - PALPITATIONS [None]
  - POLLAKIURIA [None]
  - POLYURIA [None]
  - TARDIVE DYSKINESIA [None]
  - TOOTH LOSS [None]
  - WEIGHT INCREASED [None]
